FAERS Safety Report 13010475 (Version 1)
Quarter: 2016Q4

REPORT INFORMATION
  Report Type: Spontaneous
  Country: US (occurrence: US)
  Receive Date: 20161208
  Receipt Date: 20161208
  Transmission Date: 20170207
  Serious: Yes (Other)
  Sender: FDA-Public Use
  Company Number: None

PATIENT
  Age: 51 Year
  Sex: Female
  Weight: 58.97 kg

DRUGS (1)
  1. VALSARTAN 320 MG [Suspect]
     Active Substance: VALSARTAN
     Indication: HYPERTENSION
     Route: 048

REACTIONS (7)
  - Syncope [None]
  - Dizziness [None]
  - Tachycardia [None]
  - Blood pressure increased [None]
  - Product substitution issue [None]
  - Hyperhidrosis [None]
  - Dysstasia [None]

NARRATIVE: CASE EVENT DATE: 20160809
